FAERS Safety Report 4575362-5 (Version None)
Quarter: 2005Q1

REPORT INFORMATION
  Report Type: 
  Country: None (occurrence: None)
  Receive Date: 20050127
  Receipt Date: 20050127
  Transmission Date: 20050727
  Serious: No
  Sender: FDA-Public Use
  Company Number: None

PATIENT
  Age: 14 Year
  Sex: Male
  Weight: 56.246 kg

DRUGS (1)
  1. LORATADINE [Suspect]
     Indication: SEASONAL ALLERGY
     Dosage: PO
     Route: 048

REACTIONS (4)
  - ABNORMAL BEHAVIOUR [None]
  - DELIRIUM [None]
  - DELUSION [None]
  - PYREXIA [None]
